FAERS Safety Report 19186897 (Version 2)
Quarter: 2023Q2

REPORT INFORMATION
  Report Type: Spontaneous
  Country: FR (occurrence: FR)
  Receive Date: 20210428
  Receipt Date: 20230629
  Transmission Date: 20230722
  Serious: Yes (Hospitalization, Other)
  Sender: FDA-Public Use
  Company Number: FR-EMA-DD-20190228-GONUGUNTLA_N1-135554

PATIENT
  Age: 67 Year
  Sex: Female

DRUGS (12)
  1. MELPHALAN [Suspect]
     Active Substance: MELPHALAN
     Indication: Non-Hodgkin^s lymphoma stage IV
     Dosage: 140 MILLIGRAM/SQ. METER
     Route: 065
  2. MELPHALAN [Suspect]
     Active Substance: MELPHALAN
     Indication: Bone marrow conditioning regimen
  3. BENDAMUSTINE HYDROCHLORIDE [Suspect]
     Active Substance: BENDAMUSTINE HYDROCHLORIDE
     Indication: Non-Hodgkin^s lymphoma stage III
     Dosage: 200 MILLIGRAM/SQ. METER
     Route: 042
  4. BENDAMUSTINE HYDROCHLORIDE [Suspect]
     Active Substance: BENDAMUSTINE HYDROCHLORIDE
     Indication: Lymphoma
     Dosage: 90 MILLIGRAM/SQ. METER, 1 CYCLE
     Route: 042
  5. BENDAMUSTINE HYDROCHLORIDE [Suspect]
     Active Substance: BENDAMUSTINE HYDROCHLORIDE
     Indication: Bone marrow conditioning regimen
  6. BENDAMUSTINE HYDROCHLORIDE [Suspect]
     Active Substance: BENDAMUSTINE HYDROCHLORIDE
     Indication: Waldenstrom^s macroglobulinaemia stage IV
  7. CYTARABINE [Suspect]
     Active Substance: CYTARABINE
     Indication: Bone marrow conditioning regimen
     Dosage: 1 GRAM PER SQUARE METRE, TWO TIMES A DAY
     Route: 065
  8. CYTARABINE [Suspect]
     Active Substance: CYTARABINE
     Indication: Non-Hodgkin^s lymphoma stage IV
  9. ETOPOSIDE [Suspect]
     Active Substance: ETOPOSIDE
     Indication: Non-Hodgkin^s lymphoma stage IV
     Dosage: 200 MILLIGRAM/SQ. METER, TWO TIMES A DAY
     Route: 065
  10. RITUXIMAB [Suspect]
     Active Substance: RITUXIMAB
     Indication: Non-Hodgkin^s lymphoma stage IV
     Dosage: 375 MILLIGRAM/SQ. METER
     Route: 065
  11. GRANULOCYTE COLONY-STIMULATING FACTOR NOS [Concomitant]
     Active Substance: GRANULOCYTE COLONY-STIMULATING FACTOR NOS
     Indication: Premedication
     Dosage: UNK
     Route: 065
  12. MOZOBIL [Concomitant]
     Active Substance: PLERIXAFOR
     Indication: Premedication
     Dosage: UNK
     Route: 065

REACTIONS (14)
  - Thrombotic microangiopathy [Recovered/Resolved]
  - Acute kidney injury [Recovered/Resolved]
  - Renal tubular disorder [Unknown]
  - Ascites [Recovered/Resolved]
  - Venoocclusive liver disease [Recovered/Resolved]
  - Pericardial effusion [Recovered/Resolved]
  - Schistocytosis [Recovered/Resolved]
  - Generalised oedema [Recovered/Resolved]
  - Haemorrhage [Unknown]
  - Renal failure [Not Recovered/Not Resolved]
  - Aplasia [Recovered/Resolved]
  - Off label use [Unknown]
  - Toxicity to various agents [Recovered/Resolved]
  - Red blood cell abnormality [Recovered/Resolved]
